FAERS Safety Report 5234716-4 (Version None)
Quarter: 2007Q1

REPORT INFORMATION
  Report Type: 
  Country: None (occurrence: None)
  Receive Date: 20070209
  Receipt Date: 20070131
  Transmission Date: 20070707
  Serious: Yes (Other)
  Sender: FDA-Public Use
  Company Number: US-ABBOTT-07P-163-0357916-00

PATIENT
  Age: 71 Year
  Sex: Female

DRUGS (4)
  1. ADALIMUMAB [Suspect]
     Indication: RHEUMATOID ARTHRITIS
     Dosage: NOT REPORTED
     Dates: end: 20031101
  2. ETANERCEPT [Suspect]
     Indication: POLYARTHRITIS
     Dosage: NOT REPORTED
     Dates: start: 20040701, end: 20041001
  3. PREDNISONE [Concomitant]
     Indication: RHEUMATOID ARTHRITIS
     Dosage: AVERAGE DOSE BETWEEN 10 TO 20 MG PER DAY
  4. STEROIDS [Concomitant]
     Indication: ARTHRALGIA
     Dosage: HIGH DOSE

REACTIONS (4)
  - CULTURE TISSUE SPECIMEN POSITIVE [None]
  - LUNG NEOPLASM [None]
  - PSEUDOMONAS INFECTION [None]
  - STAPHYLOCOCCAL INFECTION [None]
